FAERS Safety Report 12737796 (Version 1)
Quarter: 2016Q3

REPORT INFORMATION
  Report Type: Spontaneous
  Country: US (occurrence: US)
  Receive Date: 20160912
  Receipt Date: 20160912
  Transmission Date: 20161109
  Serious: Yes (Life-Threatening, Hospitalization)
  Sender: FDA-Public Use
  Company Number: None

PATIENT
  Age: 50 Year
  Sex: Female
  Weight: 78.75 kg

DRUGS (11)
  1. INVOKANA [Concomitant]
     Active Substance: CANAGLIFLOZIN
  2. LOSARTAN. [Concomitant]
     Active Substance: LOSARTAN
  3. IBUPROFEN. [Concomitant]
     Active Substance: IBUPROFEN
  4. PANTOPRAZOLE [Concomitant]
     Active Substance: PANTOPRAZOLE SODIUM
  5. TRUJEO [Concomitant]
  6. DULOXETINE. [Concomitant]
     Active Substance: DULOXETINE
  7. GABAPNT- IN [Concomitant]
  8. TYLENOL [Concomitant]
     Active Substance: ACETAMINOPHEN
  9. AMBIEN [Concomitant]
     Active Substance: ZOLPIDEM TARTRATE
  10. BYDUREON [Suspect]
     Active Substance: EXENATIDE
     Indication: DIABETES MELLITUS
     Dates: start: 20160831, end: 20160831
  11. APRIDRA [Concomitant]

REACTIONS (8)
  - Erythema [None]
  - Organ failure [None]
  - Dysarthria [None]
  - Pharyngeal oedema [None]
  - Pruritus [None]
  - Cardiac disorder [None]
  - Anaphylactic shock [None]
  - Hyperhidrosis [None]

NARRATIVE: CASE EVENT DATE: 20160831
